FAERS Safety Report 7728547-0 (Version None)
Quarter: 2011Q3

REPORT INFORMATION
  Report Type: 
  Country: None (occurrence: None)
  Receive Date: 20110906
  Receipt Date: 20110826
  Transmission Date: 20111222
  Serious: No
  Sender: FDA-Public Use
  Company Number: US-BIOGENIDEC-2011BI027836

PATIENT
  Age: 31 Year
  Sex: Female

DRUGS (1)
  1. TYSABRI [Suspect]
     Indication: MULTIPLE SCLEROSIS
     Route: 042
     Dates: start: 20110401

REACTIONS (5)
  - ANXIETY [None]
  - IRRITABILITY [None]
  - BIPOLAR DISORDER [None]
  - FATIGUE [None]
  - COGNITIVE DISORDER [None]
